FAERS Safety Report 9007432 (Version 2)
Quarter: 2013Q1

REPORT INFORMATION
  Report Type: Spontaneous
  Country: US (occurrence: US)
  Receive Date: 20130110
  Receipt Date: 20130312
  Transmission Date: 20140127
  Serious: Yes (Other)
  Sender: FDA-Public Use
  Company Number: US-PFIZER INC-2013011435

PATIENT
  Age: 49 Year
  Sex: Female
  Weight: 68.03 kg

DRUGS (2)
  1. ACCURETIC [Suspect]
     Indication: HYPERTENSION
     Dosage: 20 MG, 1X/DAY
     Route: 048
     Dates: start: 2012
  2. CRESTOR [Concomitant]
     Indication: BLOOD CHOLESTEROL INCREASED
     Dosage: UNK

REACTIONS (5)
  - Haemoglobin decreased [Unknown]
  - Uterine leiomyoma [Unknown]
  - Menorrhagia [Unknown]
  - Influenza [Recovered/Resolved]
  - Weight decreased [Unknown]
